FAERS Safety Report 24675516 (Version 1)
Quarter: 2024Q4

REPORT INFORMATION
  Report Type: Spontaneous
  Country: US (occurrence: US)
  Receive Date: 20241128
  Receipt Date: 20241128
  Transmission Date: 20250114
  Serious: Yes (Other)
  Sender: GLENMARK
  Company Number: US-MLMSERVICE-20241112-PI253236-00163-1

PATIENT

DRUGS (1)
  1. GABAPENTIN [Suspect]
     Active Substance: GABAPENTIN
     Indication: Stiff person syndrome
     Dosage: UNK
     Route: 065

REACTIONS (4)
  - Stiff person syndrome [Unknown]
  - Disease progression [Unknown]
  - Fall [Unknown]
  - Therapeutic product effect incomplete [Unknown]
